FAERS Safety Report 5751307-7 (Version None)
Quarter: 2008Q2

REPORT INFORMATION
  Report Type: 
  Country: None (occurrence: None)
  Receive Date: 20080528
  Receipt Date: 20080519
  Transmission Date: 20081010
  Serious: Yes (Hospitalization, Other)
  Sender: FDA-Public Use
  Company Number: US-AMGEN-STX197313

PATIENT
  Sex: Female

DRUGS (16)
  1. ENBREL [Suspect]
     Indication: RHEUMATOID ARTHRITIS
     Route: 058
     Dates: start: 20010125
  2. ENBREL [Suspect]
     Route: 058
     Dates: start: 20050101
  3. ENBREL [Suspect]
     Route: 058
  4. RELAFEN [Suspect]
  5. RELAFEN [Suspect]
  6. ACIPHEX [Concomitant]
  7. PLAVIX [Concomitant]
     Dates: end: 20060101
  8. SYNTHROID [Concomitant]
  9. DIGOXIN [Concomitant]
  10. FUROSEMIDE [Concomitant]
  11. KLOR-CON [Concomitant]
  12. ENALAPRIL MALEATE [Concomitant]
  13. ENALAPRIL MALEATE [Concomitant]
  14. VALIUM [Concomitant]
  15. DIOVAN [Concomitant]
  16. DIDRONEL [Concomitant]

REACTIONS (33)
  - ARTHRALGIA [None]
  - ASTHENIA [None]
  - ASTHENOPIA [None]
  - BURSITIS [None]
  - CARDIAC FAILURE CONGESTIVE [None]
  - CARDIAC MURMUR [None]
  - CONDITION AGGRAVATED [None]
  - CONSTIPATION [None]
  - CYSTITIS [None]
  - DEMYELINATION [None]
  - DIARRHOEA [None]
  - DYSPEPSIA [None]
  - FATIGUE [None]
  - FOOT DEFORMITY [None]
  - GALLBLADDER OPERATION [None]
  - GASTROINTESTINAL ANGIODYSPLASIA [None]
  - HAEMOGLOBIN DECREASED [None]
  - HEADACHE [None]
  - HEART RATE IRREGULAR [None]
  - INJECTION SITE PAIN [None]
  - LACUNAR INFARCTION [None]
  - LEUKOENCEPHALOPATHY [None]
  - LOCALISED INFECTION [None]
  - MICROANGIOPATHY [None]
  - OCCULT BLOOD POSITIVE [None]
  - OSTEOARTHRITIS [None]
  - OSTEOPOROSIS [None]
  - RESTRICTIVE PULMONARY DISEASE [None]
  - RHEUMATOID ARTHRITIS [None]
  - SPINAL OSTEOARTHRITIS [None]
  - STAPHYLOCOCCAL INFECTION [None]
  - URINARY INCONTINENCE [None]
  - VISUAL DISTURBANCE [None]
